FAERS Safety Report 7204921-6 (Version None)
Quarter: 2010Q4

REPORT INFORMATION
  Report Type: 
  Country: None (occurrence: None)
  Receive Date: 20101230
  Receipt Date: 20101224
  Transmission Date: 20110411
  Serious: Yes (Death, Other)
  Sender: FDA-Public Use
  Company Number: LT-BAXTER-2010BH030927

PATIENT
  Sex: Male

DRUGS (7)
  1. IFOSFAMIDE [Suspect]
     Indication: GERM CELL CANCER
     Route: 065
  2. IFOSFAMIDE [Suspect]
     Route: 065
  3. ETOPOSIDE [Suspect]
     Indication: GERM CELL CANCER
     Route: 065
  4. ETOPOSIDE [Suspect]
     Route: 065
  5. CISPLATIN [Suspect]
     Indication: GERM CELL CANCER
     Route: 065
  6. PACLITAXEL [Suspect]
     Indication: GERM CELL CANCER
     Route: 065
  7. CARBOPLATIN [Suspect]
     Indication: GERM CELL CANCER
     Route: 065

REACTIONS (2)
  - DRUG TOXICITY [None]
  - THROMBOCYTOPENIA [None]
